FAERS Safety Report 16839486 (Version 1)
Quarter: 2019Q4

REPORT INFORMATION
  Report Type: Spontaneous
  Country: US (occurrence: US)
  Receive Date: 20190921
  Receipt Date: 20190921
  Transmission Date: 20200122
  Serious: No
  Sender: FDA-Public Use
  Company Number: None

PATIENT
  Age: 33 Year
  Sex: Female
  Weight: 61.65 kg

DRUGS (1)
  1. PREDNISONE 20MG [Suspect]
     Active Substance: PREDNISONE
     Indication: IMMUNE THROMBOCYTOPENIC PURPURA
     Dosage: ?          QUANTITY:1 TABLET(S);?
     Route: 048
     Dates: start: 20170710, end: 20170920

REACTIONS (4)
  - Tremor [None]
  - Muscle atrophy [None]
  - Gait disturbance [None]
  - Muscle spasms [None]
